FAERS Safety Report 6025767-0 (Version None)
Quarter: 2008Q4

REPORT INFORMATION
  Report Type: 
  Country: None (occurrence: None)
  Receive Date: 20081224
  Receipt Date: 20081217
  Transmission Date: 20090506
  Serious: Yes (Death)
  Sender: FDA-Public Use
  Company Number: GXKR2008US12067

PATIENT
  Age: 14 Year
  Sex: Male

DRUGS (6)
  1. METHOTREXATE [Suspect]
     Indication: ACUTE LYMPHOCYTIC LEUKAEMIA
     Dosage: INTRATHECAL
     Route: 037
  2. HYDROCORTISONE [Suspect]
     Indication: ACUTE LYMPHOCYTIC LEUKAEMIA
     Dosage: INTRATHECAL
     Route: 037
  3. CYTARABINE [Suspect]
     Indication: ACUTE LYMPHOCYTIC LEUKAEMIA
     Dosage: INTRATHECAL
     Route: 037
  4. FLUDARABINE (NGX) (FLUDARABINE) [Suspect]
     Indication: ACUTE LYMPHOCYTIC LEUKAEMIA
     Dosage: INTRATHECAL
     Route: 037
  5. MELPHALAN (MELPHALAN) [Suspect]
     Indication: ACUTE LYMPHOCYTIC LEUKAEMIA
  6. THIOTEPA [Suspect]
     Indication: ACUTE LYMPHOCYTIC LEUKAEMIA

REACTIONS (9)
  - BONE MARROW TRANSPLANT [None]
  - CARDIAC ARREST [None]
  - DISORIENTATION [None]
  - LABILE BLOOD PRESSURE [None]
  - LEUKOENCEPHALOPATHY [None]
  - MUSCULAR WEAKNESS [None]
  - SUDDEN DEATH [None]
  - TACHYPNOEA [None]
  - UNRESPONSIVE TO STIMULI [None]
